FAERS Safety Report 23049573 (Version 2)
Quarter: 2024Q1

REPORT INFORMATION
  Report Type: Spontaneous
  Country: None (occurrence: AU)
  Receive Date: 20231010
  Receipt Date: 20240106
  Transmission Date: 20240410
  Serious: Yes (Other)
  Sender: FDA-Public Use
  Company Number: AU-Ascend Therapeutics US, LLC-2146860

PATIENT
  Age: 53 Year
  Sex: Male

DRUGS (22)
  1. ANDROGEL [Suspect]
     Active Substance: TESTOSTERONE
     Indication: Product used for unknown indication
     Route: 062
  2. TESTOSTERONE [Suspect]
     Active Substance: TESTOSTERONE
     Route: 062
  3. COSENTYX [Suspect]
     Active Substance: SECUKINUMAB
     Route: 065
  4. DIPROSONE [Suspect]
     Active Substance: BETAMETHASONE DIPROPIONATE
     Route: 065
  5. OXYCODONE HYDROCHLORIDE [Suspect]
     Active Substance: OXYCODONE HYDROCHLORIDE
     Route: 065
  6. FISH OIL [Suspect]
     Active Substance: FISH OIL
     Route: 065
  7. NEXIUM [Suspect]
     Active Substance: ESOMEPRAZOLE MAGNESIUM
     Route: 065
  8. ATROPINE [Suspect]
     Active Substance: ATROPINE\ATROPINE SULFATE
     Route: 065
  9. BUPRENORPHINE [Suspect]
     Active Substance: BUPRENORPHINE
     Route: 065
  10. FLECAINIDE ACETATE [Suspect]
     Active Substance: FLECAINIDE ACETATE
     Route: 065
  11. FOLIC ACID [Suspect]
     Active Substance: FOLIC ACID
     Route: 065
  12. IBUPROFEN [Suspect]
     Active Substance: IBUPROFEN
     Route: 065
  13. METHOTREXATE [Suspect]
     Active Substance: METHOTREXATE
     Route: 065
     Dates: start: 201809
  14. ONDANSETRON [Suspect]
     Active Substance: ONDANSETRON
     Route: 065
  15. OXYCODONE. [Suspect]
     Active Substance: OXYCODONE HYDROCHLORIDE
     Route: 065
  16. ACETAMINOPHEN [Suspect]
     Active Substance: ACETAMINOPHEN
     Route: 065
  17. PIROXICAM [Suspect]
     Active Substance: PIROXICAM
     Route: 065
  18. METHOTREXATE [Suspect]
     Active Substance: METHOTREXATE
     Route: 048
  19. METHOTREXATE [Suspect]
     Active Substance: METHOTREXATE
     Route: 058
  20. METHOTREXATE [Suspect]
     Active Substance: METHOTREXATE
     Route: 048
  21. METHOTREXATE [Suspect]
     Active Substance: METHOTREXATE
     Route: 048
  22. COSENTYX [Suspect]
     Active Substance: SECUKINUMAB
     Route: 065

REACTIONS (13)
  - Haematochezia [Unknown]
  - Psoriatic arthropathy [Unknown]
  - Renal impairment [Unknown]
  - Pancreatitis [Unknown]
  - Arthralgia [Unknown]
  - Palmoplantar pustulosis [Recovering/Resolving]
  - Plantar fasciitis [Not Recovered/Not Resolved]
  - Psoriasis [Unknown]
  - Secondary hypogonadism [Unknown]
  - Gastrointestinal disorder [Unknown]
  - Inflammatory pain [Unknown]
  - Osteopenia [Unknown]
  - Nausea [Recovered/Resolved]
